FAERS Safety Report 17356371 (Version 21)
Quarter: 2025Q1

REPORT INFORMATION
  Report Type: Report from Study
  Country: US (occurrence: US)
  Receive Date: 20200131
  Receipt Date: 20250314
  Transmission Date: 20250409
  Serious: Yes (Hospitalization, Other)
  Sender: TAKEDA
  Company Number: US-SHIRE-US202003092

PATIENT
  Age: 78 Year
  Sex: Female
  Weight: 63 kg

DRUGS (27)
  1. HUMAN IMMUNOGLOBULIN G [Suspect]
     Active Substance: HUMAN IMMUNOGLOBULIN G
     Indication: Immunodeficiency common variable
     Dosage: 15 GRAM, 1/WEEK
     Dates: start: 20170414
  2. HUMAN IMMUNOGLOBULIN G [Suspect]
     Active Substance: HUMAN IMMUNOGLOBULIN G
     Dosage: 15 GRAM, 1/WEEK
     Dates: start: 20170419
  3. HUMAN IMMUNOGLOBULIN G [Suspect]
     Active Substance: HUMAN IMMUNOGLOBULIN G
     Dosage: 15 GRAM, 1/WEEK
     Dates: start: 20230224
  4. HUMAN IMMUNOGLOBULIN G [Suspect]
     Active Substance: HUMAN IMMUNOGLOBULIN G
     Dosage: 13 GRAM, 1/WEEK
  5. DIPHENHYDRAMINE [Concomitant]
     Active Substance: DIPHENHYDRAMINE
  6. VITAMIN D3 [Concomitant]
     Active Substance: CHOLECALCIFEROL
  7. EPINEPHRINE [Concomitant]
     Active Substance: EPINEPHRINE
  8. LEVAQUIN [Concomitant]
     Active Substance: LEVOFLOXACIN
  9. ZYRTEC [Concomitant]
     Active Substance: CETIRIZINE HYDROCHLORIDE
  10. SPIRIVA [Concomitant]
     Active Substance: TIOTROPIUM BROMIDE MONOHYDRATE
  11. ACETAMINOPHEN [Concomitant]
     Active Substance: ACETAMINOPHEN
  12. ALBUTEROL SULFATE [Concomitant]
     Active Substance: ALBUTEROL SULFATE
  13. TRAZODONE HCL [Concomitant]
     Active Substance: TRAZODONE HYDROCHLORIDE
  14. OXYGEN [Concomitant]
     Active Substance: OXYGEN
  15. PROTONIX [Concomitant]
     Active Substance: PANTOPRAZOLE SODIUM
  16. COREG [Concomitant]
     Active Substance: CARVEDILOL
  17. ALDACTONE [Concomitant]
     Active Substance: SPIRONOLACTONE
  18. LEXAPRO [Concomitant]
     Active Substance: ESCITALOPRAM OXALATE
  19. LASIX [Concomitant]
     Active Substance: FUROSEMIDE
  20. METHIMAZOLE [Concomitant]
     Active Substance: METHIMAZOLE
  21. MUCINEX [Concomitant]
     Active Substance: GUAIFENESIN
  22. ZOCOR [Concomitant]
     Active Substance: SIMVASTATIN
  23. Lmx [Concomitant]
  24. BENZONATATE [Concomitant]
     Active Substance: BENZONATATE
  25. FERROUS SULFATE [Concomitant]
     Active Substance: FERROUS SULFATE
  26. LEVOFLOXACIN [Concomitant]
     Active Substance: LEVOFLOXACIN
  27. DIPHENHYDRAMINE HYDROCHLORIDE [Concomitant]
     Active Substance: DIPHENHYDRAMINE HYDROCHLORIDE

REACTIONS (20)
  - Pneumonia [Unknown]
  - Chronic obstructive pulmonary disease [Unknown]
  - Fall [Unknown]
  - Respiratory tract infection [Unknown]
  - Kidney infection [Unknown]
  - Eye haemorrhage [Unknown]
  - Blood potassium abnormal [Unknown]
  - Blood pressure decreased [Unknown]
  - Cardiac failure congestive [Unknown]
  - Obstruction [Unknown]
  - Rhinitis [Unknown]
  - Upper respiratory tract infection [Unknown]
  - Urinary tract infection [Unknown]
  - Nasopharyngitis [Unknown]
  - Sinusitis [Unknown]
  - Bronchitis [Unknown]
  - Multiple allergies [Unknown]
  - Product dose omission issue [Unknown]
  - Seasonal allergy [Unknown]
  - Feeling abnormal [Unknown]

NARRATIVE: CASE EVENT DATE: 20210719
